FAERS Safety Report 9803723 (Version 1)
Quarter: 2014Q1

REPORT INFORMATION
  Report Type: Spontaneous
  Country: IL (occurrence: IL)
  Receive Date: 20140108
  Receipt Date: 20140108
  Transmission Date: 20141002
  Serious: Yes (Hospitalization)
  Sender: FDA-Public Use
  Company Number: IL-B.I. PHARMACEUTICALS,INC./RIDGEFIELD-2014-BI-00631RI

PATIENT
  Age: 80 Year
  Sex: Female

DRUGS (2)
  1. PRADAXA [Suspect]
     Indication: ATRIAL FIBRILLATION
     Dosage: 220 MG
     Route: 048
  2. ASPIRIN [Concomitant]

REACTIONS (3)
  - Anaemia [Recovered/Resolved]
  - Gastrointestinal haemorrhage [Recovered/Resolved]
  - Creatinine renal clearance decreased [Recovered/Resolved]
